FAERS Safety Report 22098348 (Version 1)
Quarter: 2023Q1

REPORT INFORMATION
  Report Type: Spontaneous
  Country: US (occurrence: None)
  Receive Date: 20230314
  Receipt Date: 20230314
  Transmission Date: 20230417
  Serious: Yes (Life-Threatening, Hospitalization, Disabling, Other)
  Sender: FDA-Public Use
  Company Number: None

PATIENT
  Age: 61 Year
  Sex: Male
  Weight: 92.25 kg

DRUGS (12)
  1. OZEMPIC [Suspect]
     Active Substance: SEMAGLUTIDE
     Indication: Type 2 diabetes mellitus
     Dosage: OTHER FREQUENCY : ONCE WEEKLY;?OTHER ROUTE : INJECTED IN THE STOMACH UNDER SKIN;?
     Route: 050
     Dates: start: 20220619, end: 20230212
  2. METFORMIN HYDROCHLORIDE [Concomitant]
     Active Substance: METFORMIN HYDROCHLORIDE
  3. REPAGLINIDE [Concomitant]
     Active Substance: REPAGLINIDE
  4. JARDIANCE [Concomitant]
     Active Substance: EMPAGLIFLOZIN
  5. Lisinipro [Concomitant]
  6. ATORVASTATIN [Concomitant]
     Active Substance: ATORVASTATIN
  7. CALCIUM [Concomitant]
     Active Substance: CALCIUM
  8. ADVAIR HFA [Concomitant]
     Active Substance: FLUTICASONE PROPIONATE\SALMETEROL XINAFOATE
  9. ONDANSETRON [Concomitant]
     Active Substance: ONDANSETRON
  10. Multi with Lutein [Concomitant]
  11. ASPIRIN [Concomitant]
     Active Substance: ASPIRIN
  12. OMEPRAZOLE [Concomitant]
     Active Substance: OMEPRAZOLE

REACTIONS (3)
  - Hepatic function abnormal [None]
  - Adenocarcinoma pancreas [None]
  - Pancreatitis [None]

NARRATIVE: CASE EVENT DATE: 20230222
